FAERS Safety Report 23668687 (Version 1)
Quarter: 2024Q1

REPORT INFORMATION
  Report Type: Spontaneous
  Country: GB (occurrence: GB)
  Receive Date: 20240325
  Receipt Date: 20240325
  Transmission Date: 20240410
  Serious: Yes (Hospitalization)
  Sender: FDA-Public Use
  Company Number: None

PATIENT
  Age: 93 Year
  Sex: Female

DRUGS (14)
  1. LANSOPRAZOLE [Suspect]
     Active Substance: LANSOPRAZOLE
     Indication: Gastrooesophageal reflux disease
     Dosage: 30 MILLIGRAM, BID
     Dates: start: 20230806
  2. MEROPENEM [Suspect]
     Active Substance: MEROPENEM
     Dosage: STAT 07/08, 1G BD 07/08 - 09/08, 1G TDS 20/08 - 23/08
  3. CIPROFLOXACIN [Suspect]
     Active Substance: CIPROFLOXACIN
     Dosage: 400 MILLIGRAM, BID
     Dates: start: 20230806, end: 20230807
  4. AZTREONAM [Suspect]
     Active Substance: AZTREONAM
     Dosage: 1 GRAM, TID
     Dates: start: 20230823, end: 20230903
  5. CLARITHROMYCIN [Suspect]
     Active Substance: CLARITHROMYCIN
     Dosage: 500 MILLIGRAM, BID
     Dates: start: 20230805, end: 20230806
  6. CEPHALEXIN [Suspect]
     Active Substance: CEPHALEXIN
     Dosage: 500 MILLIGRAM, TID
     Dates: start: 20230810, end: 20230814
  7. CALCIUM CARBONATE\CHOLECALCIFEROL [Concomitant]
     Active Substance: CALCIUM CARBONATE\CHOLECALCIFEROL
     Dosage: 2 DOSAGE FORM, QD
     Dates: start: 20240228
  8. POTASSIUM BICARBONATE\SODIUM ALGINATE [Concomitant]
     Active Substance: POTASSIUM BICARBONATE\SODIUM ALGINATE
     Dosage: ONE OR TWO 5ML SPOONFUL^S TO BE TAKEN THREE TIMES A DAY AFTER FOOD AND AT NIGHT.
  9. ACETAMINOPHEN [Concomitant]
     Active Substance: ACETAMINOPHEN
     Dosage: 500 MILLIGRAM, QID
  10. DOCUSATE [Concomitant]
     Active Substance: DOCUSATE
     Dosage: 1 OR 2 DAILY
  11. MOMETASONE [Concomitant]
     Active Substance: MOMETASONE
     Dosage: 4 DOSAGE FORM, QD
  12. AMLODIPINE [Concomitant]
     Active Substance: AMLODIPINE BESYLATE
     Dosage: 5 MILLIGRAM, QD
  13. PRAMIPEXOLE [Concomitant]
     Active Substance: PRAMIPEXOLE\PRAMIPEXOLE DIHYDROCHLORIDE
     Dosage: 88 MICROGRAM, QD
  14. SENNA [Concomitant]
     Active Substance: SENNA LEAF\SENNOSIDES\SENNOSIDES A AND B
     Indication: Constipation
     Dosage: TWO TO BE TAKEN AT NIGHT

REACTIONS (1)
  - Clostridium test positive [Unknown]

NARRATIVE: CASE EVENT DATE: 20230830
